FAERS Safety Report 5593026-6 (Version None)
Quarter: 2008Q1

REPORT INFORMATION
  Report Type: 
  Country: None (occurrence: None)
  Receive Date: 20080116
  Receipt Date: 20080108
  Transmission Date: 20080703
  Serious: Yes (Other)
  Sender: FDA-Public Use
  Company Number: US-JNJFOC-20080102362

PATIENT
  Sex: Female
  Weight: 54.43 kg

DRUGS (3)
  1. FENTANYL TRANSDERMAL SYSTEM [Suspect]
     Route: 062
  2. FENTANYL TRANSDERMAL SYSTEM [Suspect]
     Indication: BONE NEOPLASM MALIGNANT
     Route: 062
  3. KLONOPIN [Concomitant]
     Indication: RESTLESS LEGS SYNDROME
     Route: 048

REACTIONS (2)
  - MENSTRUAL DISORDER [None]
  - NAUSEA [None]
